FAERS Safety Report 8160807-4 (Version None)
Quarter: 2012Q1

REPORT INFORMATION
  Report Type: 
  Country: None (occurrence: None)
  Receive Date: 20120223
  Receipt Date: 20120217
  Transmission Date: 20120608
  Serious: Yes (Hospitalization)
  Sender: FDA-Public Use
  Company Number: PHEH2012US004193

PATIENT
  Sex: Female

DRUGS (6)
  1. DIOVAN HCT [Concomitant]
  2. ASPIRIN [Concomitant]
     Dosage: 81 MG, UNK
  3. AFINITOR [Suspect]
     Indication: RENAL CELL CARCINOMA
     Dosage: 7.5 MG, QD
     Route: 048
     Dates: start: 20110118
  4. DEXAMETHASONE [Concomitant]
     Dosage: 1.5 MG, UNK
  5. SIMVASTATIN [Concomitant]
     Dosage: 80 MG, UNK
  6. METFORMIN HCL [Concomitant]
     Dosage: 500 MG, UNK

REACTIONS (5)
  - OXYGEN SATURATION DECREASED [None]
  - PYREXIA [None]
  - PLATELET COUNT DECREASED [None]
  - RED BLOOD CELL COUNT DECREASED [None]
  - WHITE BLOOD CELL COUNT DECREASED [None]
